FAERS Safety Report 21292887 (Version 1)
Quarter: 2022Q3

REPORT INFORMATION
  Report Type: Spontaneous
  Country: ES (occurrence: ES)
  Receive Date: 20220905
  Receipt Date: 20220905
  Transmission Date: 20221027
  Serious: Yes (Hospitalization)
  Sender: FDA-Public Use
  Company Number: None

PATIENT
  Age: 63 Year
  Sex: Male

DRUGS (6)
  1. QUETIAPINE [Interacting]
     Active Substance: QUETIAPINE
     Indication: Product used for unknown indication
     Dosage: QUETIAPIN (1136A) , UNIT DOSE :  12.5 MG, FREQUENCY TIME : 1 TOTAL, FREQUENCY TIME : 1 DAY
     Route: 065
     Dates: start: 20220530, end: 20220530
  2. TRAMADOL HYDROCHLORIDE [Interacting]
     Active Substance: TRAMADOL HYDROCHLORIDE
     Indication: Product used for unknown indication
     Dosage: TRAMADOL HIDROCHLORIDE  (2389CH), UNIT DOSE :  50 MG, FREQUENCY TIME : 1 TOTAL,   DURATION  : 1 DAY
     Route: 065
     Dates: start: 20220526, end: 20220526
  3. PAROXETINE [Interacting]
     Active Substance: PAROXETINE
     Indication: Product used for unknown indication
     Dosage: PAROXETIN (2586A), UNIT DOSE :  20MG, FREQUENCY TIME : 1 DAY, DURATION : 376 DAYS
     Route: 065
     Dates: start: 20210521, end: 20220531
  4. GABAPENTIN [Interacting]
     Active Substance: GABAPENTIN
     Indication: Product used for unknown indication
     Dosage: GABAPENTIN (2641A) , UNIT DOSE :  100MG, FREQUENCY TIME : 12 HOURS,  DURATION  : 1 DAY
     Route: 065
     Dates: start: 20220528, end: 20220528
  5. ALFENTANIL [Interacting]
     Active Substance: ALFENTANIL
     Indication: Product used for unknown indication
     Dosage: ALFENTANIL (2480A) , UNIT DOSE :  25 MCG, FREQUENCY TIME : 72 HOURS ,  DURATION : 6 DAYS
     Route: 065
     Dates: start: 20220526, end: 20220531
  6. BACLOFEN [Concomitant]
     Active Substance: BACLOFEN
     Indication: Product used for unknown indication
     Dosage: UNIT DOSE :  10MG, FREQUENCY TIME : 12 HOURS
     Route: 065
     Dates: start: 20210521

REACTIONS (5)
  - Delirium [Recovered/Resolved]
  - Myoclonus [Recovered/Resolved]
  - Somnolence [Recovered/Resolved]
  - Disorientation [Recovered/Resolved]
  - Drug interaction [Unknown]

NARRATIVE: CASE EVENT DATE: 20220531
